FAERS Safety Report 9156846 (Version 1)
Quarter: 2013Q1

REPORT INFORMATION
  Report Type: Spontaneous
  Country: US (occurrence: US)
  Receive Date: 20130312
  Receipt Date: 20130312
  Transmission Date: 20140127
  Serious: Yes (Hospitalization)
  Sender: FDA-Public Use
  Company Number: US-BAYER-2013-028340

PATIENT
  Age: 16 Year
  Sex: Female
  Weight: 57 kg

DRUGS (10)
  1. YAZ [Suspect]
     Indication: HORMONE LEVEL ABNORMAL
  2. YASMIN [Suspect]
  3. AMOXICILLIN [Concomitant]
  4. AZITHROMYCIN [Concomitant]
  5. MAXIFED [Concomitant]
  6. CHERATUSSIN [CODEINE,GUAIFENESIN,PSEUDOEPHEDRINE] [Concomitant]
  7. NYSTATIN W/TRIAMCINOLONE [NYSTATIN,TRIAMCINOLONE] [Concomitant]
  8. NAPROXEN [Concomitant]
     Dosage: 500 MG, UNK
  9. CLINDAMYCIN [Concomitant]
  10. DOXYCYCLINE HYCLATE [Concomitant]

REACTIONS (2)
  - Pulmonary embolism [Recovered/Resolved]
  - Deep vein thrombosis [Recovered/Resolved]
